FAERS Safety Report 23161060 (Version 1)
Quarter: 2023Q4

REPORT INFORMATION
  Report Type: Report from Study
  Country: NL (occurrence: NL)
  Receive Date: 20231108
  Receipt Date: 20231108
  Transmission Date: 20240109
  Serious: Yes (Death, Other)
  Sender: FDA-Public Use
  Company Number: NL-VER-202300083

PATIENT
  Age: 76 Year
  Sex: Male

DRUGS (3)
  1. TRIPTORELIN PAMOATE [Suspect]
     Active Substance: TRIPTORELIN PAMOATE
     Indication: Prostate cancer
     Dosage: 1.00 X PER 24 WEEKS; ZINR: 15533212 (22.5 MG,24 WK)
     Route: 030
     Dates: start: 20230112, end: 20230112
  2. TRIPTORELIN PAMOATE [Suspect]
     Active Substance: TRIPTORELIN PAMOATE
     Indication: Prostate cancer
     Dosage: 1.00 X PER 24 WEEKS; ZINR: 15533212 (22.5 MG,24 WK)
     Route: 030
     Dates: start: 20230622, end: 20230622
  3. TRIPTORELIN PAMOATE [Suspect]
     Active Substance: TRIPTORELIN PAMOATE
     Indication: Prostate cancer
     Dosage: 1.00 X PER 24 WEEKS; ZINR: 15533212 (22.5 MG,24 WK)
     Route: 030
     Dates: start: 20210803, end: 20210803

REACTIONS (1)
  - Death [Fatal]

NARRATIVE: CASE EVENT DATE: 20230717
